FAERS Safety Report 19118459 (Version 1)
Quarter: 2021Q2

REPORT INFORMATION
  Report Type: Spontaneous
  Country: NO (occurrence: NO)
  Receive Date: 20210409
  Receipt Date: 20210409
  Transmission Date: 20210717
  Serious: Yes (Hospitalization)
  Sender: FDA-Public Use
  Company Number: NO-ELI_LILLY_AND_COMPANY-NO202104002268

PATIENT
  Age: 32 Year
  Sex: Female
  Weight: 58 kg

DRUGS (4)
  1. ZYPREXA [Suspect]
     Active Substance: OLANZAPINE
     Indication: PSYCHOTIC DISORDER
     Dosage: UNK, UNKNOWN
     Route: 065
     Dates: start: 20210116, end: 20210124
  2. ZYPREXA [Suspect]
     Active Substance: OLANZAPINE
     Indication: SLEEP DISORDER
  3. DICLOXACILLIN ORION [Concomitant]
     Indication: ANTIBIOTIC PROPHYLAXIS
     Dosage: 1000 MG, EVERY 6 HRS
     Dates: start: 202101, end: 202101
  4. COD?LIVER OIL [Concomitant]
     Active Substance: COD LIVER OIL
     Indication: PRODUCT USED FOR UNKNOWN INDICATION
     Dosage: UNK, UNKNOWN
     Route: 065

REACTIONS (13)
  - Delusion [Unknown]
  - Psychotic disorder [Unknown]
  - Mania [Unknown]
  - Hysterical psychosis [Unknown]
  - Feeling abnormal [Unknown]
  - Energy increased [Unknown]
  - Psychotic disorder [Recovered/Resolved]
  - Tachyphrenia [Unknown]
  - Stress [Unknown]
  - Fear [Unknown]
  - Language disorder [Unknown]
  - Confusional state [Unknown]
  - Restlessness [Unknown]

NARRATIVE: CASE EVENT DATE: 20210116
